FAERS Safety Report 7711193-2 (Version None)
Quarter: 2011Q3

REPORT INFORMATION
  Report Type: 
  Country: None (occurrence: None)
  Receive Date: 20110826
  Receipt Date: 20110818
  Transmission Date: 20111222
  Serious: No
  Sender: FDA-Public Use
  Company Number: US-BIOGENIDEC-2011BI031908

PATIENT
  Sex: Female

DRUGS (4)
  1. ANTIBIOTIC (NOS) [Concomitant]
     Indication: PROPHYLAXIS URINARY TRACT INFECTION
  2. MULTI-VITAMIN [Concomitant]
     Indication: PRODUCT USED FOR UNKNOWN INDICATION
  3. METAMUCIL-2 [Concomitant]
     Indication: FAECAL VOLUME INCREASED
  4. TYSABRI [Suspect]
     Indication: MULTIPLE SCLEROSIS
     Route: 042

REACTIONS (1)
  - VASCULITIS [None]
